FAERS Safety Report 10731087 (Version 1)
Quarter: 2015Q1

REPORT INFORMATION
  Report Type: Spontaneous
  Country: PL (occurrence: PL)
  Receive Date: 20150122
  Receipt Date: 20150122
  Transmission Date: 20150721
  Serious: Yes (Hospitalization, Other)
  Sender: FDA-Public Use
  Company Number: PL-ELI_LILLY_AND_COMPANY-PL201501004421

PATIENT
  Age: 57 Year
  Sex: Male
  Weight: 70 kg

DRUGS (4)
  1. ZYPREXA [Suspect]
     Active Substance: OLANZAPINE
     Indication: SCHIZOPHRENIA
     Dosage: 20 MG, UNKNOWN
     Route: 065
  2. ZYPREXA [Suspect]
     Active Substance: OLANZAPINE
     Dosage: 20 MG, UNKNOWN
     Route: 065
  3. ZYPADHERA [Suspect]
     Active Substance: OLANZAPINE PAMOATE
     Indication: SCHIZOPHRENIA
     Dosage: 300 MG, OTHER
     Route: 065
     Dates: start: 20141222
  4. HYDROXYZINE [Concomitant]
     Active Substance: HYDROXYZINE\HYDROXYZINE HYDROCHLORIDE
     Indication: INSOMNIA
     Dosage: UNK, PRN
     Route: 065

REACTIONS (6)
  - Psychotic disorder [Recovered/Resolved]
  - Speech disorder [Unknown]
  - Inappropriate schedule of drug administration [Unknown]
  - Headache [Not Recovered/Not Resolved]
  - Feeling abnormal [Unknown]
  - Accidental overdose [Unknown]

NARRATIVE: CASE EVENT DATE: 201412
